APPROVED DRUG PRODUCT: BUMETANIDE
Active Ingredient: BUMETANIDE
Strength: 0.25MG/ML
Dosage Form/Route: INJECTABLE;INJECTION
Application: A215364 | Product #001 | TE Code: AP
Applicant: MSN LABORATORIES PRIVATE LTD
Approved: Aug 4, 2022 | RLD: No | RS: No | Type: RX